FAERS Safety Report 18422121 (Version 1)
Quarter: 2020Q4

REPORT INFORMATION
  Report Type: Report from Study
  Country: US (occurrence: US)
  Receive Date: 20201023
  Receipt Date: 20201023
  Transmission Date: 20210114
  Serious: Yes (Hospitalization)
  Sender: FDA-Public Use
  Company Number: US-TEVA-2020-US-1841315

PATIENT
  Age: 61 Year
  Sex: Female
  Weight: 60.1 kg

DRUGS (5)
  1. BORTEZOMIB. [Suspect]
     Active Substance: BORTEZOMIB
     Indication: PLASMA CELL MYELOMA
     Dosage: 1.7 MG EVERY 72 HOURS
     Route: 058
     Dates: start: 20200915, end: 20200918
  2. ETOPOSIDE. [Suspect]
     Active Substance: ETOPOSIDE
     Indication: PLASMA CELL MYELOMA
     Dosage: 68 MILLIGRAM DAILY; 68 MILLIGRAM, 1 IN 24 HR IV
     Route: 042
     Dates: start: 20200915, end: 20200919
  3. CISPLATIN. [Suspect]
     Active Substance: CISPLATIN
     Indication: PLASMA CELL MYELOMA
     Dosage: 17 MILLIGRAM DAILY; 17 MG DAILY
     Route: 042
     Dates: start: 20200915, end: 20200919
  4. DOXORUBICIN [Suspect]
     Active Substance: DOXORUBICIN
     Indication: PLASMA CELL MYELOMA
     Dosage: 17 MILLIGRAM DAILY; 17 MG EVERY 24 HOURS
     Route: 042
     Dates: start: 20200915, end: 20200919
  5. CYCLOPHOSPHAMIDE. [Suspect]
     Active Substance: CYCLOPHOSPHAMIDE
     Indication: PLASMA CELL MYELOMA
     Dosage: 650 MILLIGRAM DAILY; 650 MG DAILY
     Route: 042
     Dates: start: 20200915, end: 20200919

REACTIONS (1)
  - Febrile neutropenia [Unknown]

NARRATIVE: CASE EVENT DATE: 20200925
